FAERS Safety Report 19202275 (Version 2)
Quarter: 2021Q2

REPORT INFORMATION
  Report Type: Spontaneous
  Country: US (occurrence: US)
  Receive Date: 20210430
  Receipt Date: 20210518
  Transmission Date: 20210717
  Serious: Yes (Other)
  Sender: FDA-Public Use
  Company Number: US-CLARIONBRANDS-2021-US-008162

PATIENT
  Sex: Male

DRUGS (1)
  1. CERTAIN DRI ROLL?ON [Suspect]
     Active Substance: ALUMINUM CHLORIDE
     Indication: PERSONAL HYGIENE
     Route: 061

REACTIONS (4)
  - Application site scar [Not Recovered/Not Resolved]
  - Application site burn [Recovered/Resolved]
  - Application site pain [Unknown]
  - Loss of personal independence in daily activities [Unknown]
